FAERS Safety Report 5352504-5 (Version None)
Quarter: 2007Q2

REPORT INFORMATION
  Report Type: 
  Country: None (occurrence: None)
  Receive Date: 20070518
  Receipt Date: 20060717
  Transmission Date: 20071010
  Serious: Yes (Death)
  Sender: FDA-Public Use
  Company Number: Q06-037

PATIENT
  Age: 59 Year
  Sex: Male

DRUGS (2)
  1. SAMARIUM [Suspect]
     Indication: PROSTATE CANCER
     Dosage: 0.5MCI/KG IV X 1
     Route: 042
     Dates: start: 20030130
  2. ZOMETA [Suspect]
     Indication: PROSTATE CANCER
     Dosage: 4MG IV Q MONTH
     Route: 042
     Dates: start: 20030131, end: 20030715

REACTIONS (2)
  - DEATH [None]
  - DISEASE PROGRESSION [None]
